FAERS Safety Report 8310043-3 (Version None)
Quarter: 2012Q2

REPORT INFORMATION
  Report Type: 
  Country: None (occurrence: None)
  Receive Date: 20120423
  Receipt Date: 20120406
  Transmission Date: 20120825
  Serious: Yes (Other)
  Sender: FDA-Public Use
  Company Number: TCI2012A01495

PATIENT
  Age: 68 Year
  Sex: Male

DRUGS (4)
  1. ACTOS [Suspect]
     Indication: DIABETES MELLITUS
     Dosage: 15 MG (15 MG, 1 IN 1 D) PER ORAL, 30  MG (30 MG, 1 IN 1 D) PER ORAL
     Route: 048
     Dates: start: 20101001, end: 20110107
  2. ACTOS [Suspect]
     Indication: DIABETES MELLITUS
     Dosage: 15 MG (15 MG, 1 IN 1 D) PER ORAL, 30  MG (30 MG, 1 IN 1 D) PER ORAL
     Route: 048
     Dates: start: 20110108, end: 20120312
  3. AMARYL [Concomitant]
  4. CALSLOT (MANIDIPINE HYDROCHLORIDE) [Concomitant]

REACTIONS (2)
  - INTERSTITIAL LUNG DISEASE [None]
  - METABOLIC SYNDROME [None]
